FAERS Safety Report 24602975 (Version 1)
Quarter: 2024Q4

REPORT INFORMATION
  Report Type: Spontaneous
  Country: RO (occurrence: RO)
  Receive Date: 20241111
  Receipt Date: 20241111
  Transmission Date: 20250114
  Serious: Yes (Other)
  Sender: PFIZER
  Company Number: RO-PFIZER INC-PV202400143649

PATIENT
  Sex: Female

DRUGS (3)
  1. IBRANCE [Suspect]
     Active Substance: PALBOCICLIB
     Dosage: 125 MG, 1X/DAY (1-0-0, 3/1)
     Dates: start: 202001
  2. IBRANCE [Suspect]
     Active Substance: PALBOCICLIB
     Dosage: 100 MG
     Dates: start: 202008
  3. FULVESTRANT [Suspect]
     Active Substance: FULVESTRANT
     Dosage: 25 MG, CYCLIC (2F, DAY 1,14,28, THEN Q4W)
     Dates: start: 202001

REACTIONS (2)
  - Neutropenia [Unknown]
  - Pulmonary embolism [Unknown]

NARRATIVE: CASE EVENT DATE: 20200801
